FAERS Safety Report 6030479-3 (Version None)
Quarter: 2009Q1

REPORT INFORMATION
  Report Type: 
  Country: None (occurrence: None)
  Receive Date: 20090106
  Receipt Date: 20090106
  Transmission Date: 20090719
  Serious: No
  Sender: FDA-Public Use
  Company Number: None

PATIENT
  Age: 5 Month
  Sex: Male
  Weight: 5.2164 kg

DRUGS (3)
  1. CAPTOPRIL [Suspect]
     Indication: MITRAL VALVE INCOMPETENCE
     Dosage: 2 ML 3X DAILY PO
     Route: 048
     Dates: start: 20081001
  2. PRILOSEC [Concomitant]
  3. LASIX [Concomitant]

REACTIONS (4)
  - ABDOMINAL DISCOMFORT [None]
  - FLATULENCE [None]
  - MEDICATION ERROR [None]
  - PRODUCT QUALITY ISSUE [None]
